FAERS Safety Report 18268466 (Version 2)
Quarter: 2021Q2

REPORT INFORMATION
  Report Type: Spontaneous
  Country: US (occurrence: US)
  Receive Date: 20200915
  Receipt Date: 20210510
  Transmission Date: 20210717
  Serious: No
  Sender: FDA-Public Use
  Company Number: US-PFIZER INC-2020355742

PATIENT
  Age: 90 Year
  Sex: Female

DRUGS (1)
  1. IBRANCE [Suspect]
     Active Substance: PALBOCICLIB
     Indication: BREAST CANCER FEMALE
     Dosage: 75 MG, CYCLIC (75 MG Q (EVERY) D (DAY) X 21 DAYS Q (EVERY) 28 DAYS)
     Dates: start: 20180301

REACTIONS (7)
  - Flushing [Not Recovered/Not Resolved]
  - Thermal burn [Unknown]
  - Product container issue [Unknown]
  - Muscle spasms [Not Recovered/Not Resolved]
  - Anaemia [Not Recovered/Not Resolved]
  - Nerve injury [Unknown]
  - Breast pain [Not Recovered/Not Resolved]
